FAERS Safety Report 6693071-3 (Version None)
Quarter: 2010Q2

REPORT INFORMATION
  Report Type: 
  Country: None (occurrence: None)
  Receive Date: 20100422
  Receipt Date: 20100419
  Transmission Date: 20101027
  Serious: Yes (Life-Threatening)
  Sender: FDA-Public Use
  Company Number: FR-ELI_LILLY_AND_COMPANY-FR201004004548

PATIENT
  Sex: Male

DRUGS (9)
  1. ALIMTA [Suspect]
     Indication: LUNG ADENOCARCINOMA
     Dosage: 500 MG/M2, OTHER
     Route: 042
     Dates: start: 20090715
  2. CISPLATIN [Concomitant]
     Indication: LUNG ADENOCARCINOMA
     Dosage: 70 MG/M2, UNKNOWN
     Route: 042
     Dates: start: 20090715
  3. FORLAX [Concomitant]
     Dosage: UNK, UNKNOWN
     Route: 048
  4. TOPALGIC LP [Concomitant]
     Dosage: 100 MG, UNKNOWN
     Route: 048
  5. LEXOMIL [Concomitant]
     Dosage: 9 MG, DAILY (1/D)
     Route: 048
  6. ATARAX [Concomitant]
     Dosage: 25 MG, DAILY (1/D)
     Route: 048
  7. VENTOLIN [Concomitant]
     Dosage: UNK, UNKNOWN
     Route: 055
  8. ATROVENT [Concomitant]
     Dosage: UNK, UNKNOWN
     Route: 055
  9. PULMICORT [Concomitant]
     Dosage: UNK, UNKNOWN
     Route: 055

REACTIONS (3)
  - EMPHYSEMA [None]
  - INTERSTITIAL LUNG DISEASE [None]
  - PULMONARY RADIATION INJURY [None]
